FAERS Safety Report 6717763-2 (Version None)
Quarter: 2010Q2

REPORT INFORMATION
  Report Type: 
  Country: None (occurrence: None)
  Receive Date: 20100510
  Receipt Date: 20100426
  Transmission Date: 20101027
  Serious: Yes (Hospitalization)
  Sender: FDA-Public Use
  Company Number: US-CELGENEUS-163-21880-10040356

PATIENT
  Sex: Female
  Weight: 65.3 kg

DRUGS (7)
  1. REVLIMID [Suspect]
     Indication: OROPHARYNGEAL CANCER RECURRENT
     Route: 048
     Dates: start: 20100223, end: 20100403
  2. CETUXIMAB [Suspect]
     Indication: GINGIVAL CANCER
     Route: 051
     Dates: start: 20100223, end: 20100323
  3. LEVOTHYROXINE SODIUM [Concomitant]
     Indication: DRUG USE FOR UNKNOWN INDICATION
     Route: 065
  4. TRAMADOL HCL [Concomitant]
     Indication: PAIN
     Route: 065
  5. PROCHLORPERAZINE [Concomitant]
     Indication: NAUSEA
     Route: 065
  6. LORAZEPAM [Concomitant]
     Indication: DRUG USE FOR UNKNOWN INDICATION
     Route: 065
  7. ASPIRIN [Concomitant]
     Indication: PROPHYLAXIS
     Route: 065
     Dates: start: 20100223

REACTIONS (2)
  - PHARYNGEAL HAEMORRHAGE [None]
  - VASCULAR PSEUDOANEURYSM [None]
